FAERS Safety Report 25178369 (Version 1)
Quarter: 2025Q2

REPORT INFORMATION
  Report Type: Spontaneous
  Country: GR (occurrence: GR)
  Receive Date: 20250409
  Receipt Date: 20250409
  Transmission Date: 20250716
  Serious: Yes (Other)
  Sender: SANDOZ
  Company Number: GR-SANDOZ-SDZ2025GR021256

PATIENT
  Age: 22 Year
  Sex: Female

DRUGS (2)
  1. ACLASTA [Suspect]
     Active Substance: ZOLEDRONIC ACID
     Indication: Dysplasia
     Route: 065
     Dates: start: 2024
  2. ACLASTA [Suspect]
     Active Substance: ZOLEDRONIC ACID
     Indication: Albright^s disease

REACTIONS (19)
  - Brain oedema [Not Recovered/Not Resolved]
  - Loss of consciousness [Unknown]
  - Oligomenorrhoea [Unknown]
  - Hyperaesthesia [Unknown]
  - Symptom recurrence [Unknown]
  - Pyrexia [Recovering/Resolving]
  - Fatigue [Unknown]
  - Malaise [Recovering/Resolving]
  - Chills [Recovering/Resolving]
  - Myalgia [Recovering/Resolving]
  - Arthralgia [Unknown]
  - Bone pain [Unknown]
  - Asthenia [Recovering/Resolving]
  - Dizziness [Recovering/Resolving]
  - Vomiting [Recovering/Resolving]
  - Toothache [Unknown]
  - Somnolence [Unknown]
  - Diarrhoea [Unknown]
  - Product use issue [Unknown]

NARRATIVE: CASE EVENT DATE: 20240101
